FAERS Safety Report 23927189 (Version 1)
Quarter: 2024Q2

REPORT INFORMATION
  Report Type: Spontaneous
  Country: US (occurrence: US)
  Receive Date: 20240531
  Receipt Date: 20240531
  Transmission Date: 20240716
  Serious: Yes (Hospitalization)
  Sender: FDA-Public Use
  Company Number: US-FMCRTG-FMC-2405-000597

PATIENT
  Age: 67 Year
  Sex: Female
  Weight: 91.5 kg

DRUGS (18)
  1. DELFLEX [Suspect]
     Active Substance: CALCIUM CHLORIDE\DEXTROSE\MAGNESIUM CHLORIDE\SODIUM CHLORIDE\SODIUM LACTATE
     Indication: End stage renal disease
     Dosage: 5 EXCHANGES (2.3L, 90 MIN DWELLS) + 1 PAUSE (2L) = TOTAL VOLUME 15L
     Route: 033
  2. ACYCLOVIR [Concomitant]
     Active Substance: ACYCLOVIR
     Dosage: 400 MG 1 TAB ORALLY DAILY
  3. ASCORBIC ACID [Concomitant]
     Active Substance: ASCORBIC ACID
     Dosage: 500 MG 1 TAB ORALLY DAILY
  4. B complex-vitamin C- Folic acid [Concomitant]
     Dosage: 1 TAB ORALLY DAILY
  5. CALCITRIOL [Concomitant]
     Active Substance: CALCITRIOL
     Dosage: 0.5 MCG 1 CAPSULE 5 TIMES A WEEK
  6. CONJUGATED ESTROGENS [Concomitant]
     Active Substance: ESTROGENS, CONJUGATED
     Dosage: 0.625 MG/GRAM VAGINAL CREAM TOPICAL TWICE A WEEK
  7. DEXAMETHASONE [Concomitant]
     Active Substance: DEXAMETHASONE
     Dosage: 4 MG TAB 5 TABS ORALLY ONCE A WEEK
  8. DIPHENHYDRAMINE [Concomitant]
     Active Substance: DIPHENHYDRAMINE
     Dosage: 25 MG CAPSULE 1 CAPSULE ONCE DAILY 2 DAYS PRIOR TO EACH DARATUMUMAB INFUSION
  9. FAMOTIDINE [Concomitant]
     Active Substance: FAMOTIDINE
     Dosage: 40 MG TAB ONCE DAILY FOR 2 DAYS PRIOR TO EACH DARATUMUMAB INFUSION
  10. IMMUNE GLOBULIN NOS [Concomitant]
     Active Substance: IMMUNE GLOBULIN NOS
     Dosage: 5 G/50 ML SOL INFUSION   INJECT 5 ML INTO VEIN EVERY 6 WEEKS
  11. LEVOTHYROXINE [Concomitant]
     Active Substance: LEVOTHYROXINE\LEVOTHYROXINE SODIUM
     Dosage: 25 MCG 1 TAB DAILY
  12. MAGNESIUM CHLORIDE [Concomitant]
     Active Substance: MAGNESIUM CHLORIDE
     Dosage: 71.5 MG 2 TABS TWICE DAILY
  13. MUPIROCIN [Concomitant]
     Active Substance: MUPIROCIN
     Dosage: 2 % TOPICAL CREAM
  14. SODIUM BICARBONATE [Concomitant]
     Active Substance: SODIUM BICARBONATE
     Dosage: 650 MG 1 TAB DAILY
  15. SULFAMETHOXAZOLE\TRIMETHOPRIM [Concomitant]
     Active Substance: SULFAMETHOXAZOLE\TRIMETHOPRIM
     Dosage: 400-80 MG/TAB 1 TAB ORALLY DAILY
  16. PEG-3350 AND ELECTROLYTES [Concomitant]
     Active Substance: POLYETHYLENE GLYCOL 3350\POTASSIUM CHLORIDE\SODIUM BICARBONATE\SODIUM CHLORIDE\SODIUM SULFATE
  17. SEVELAMER CARBONATE [Concomitant]
     Active Substance: SEVELAMER CARBONATE
     Dosage: 800 MG 1 TAB ORAL 3 TIMES A DAY
  18. SILVER SULFADIAZINE [Concomitant]
     Active Substance: SILVER SULFADIAZINE

REACTIONS (2)
  - Sepsis [Recovering/Resolving]
  - Peritonitis bacterial [Recovering/Resolving]
